FAERS Safety Report 13748570 (Version 1)
Quarter: 2017Q3

REPORT INFORMATION
  Report Type: Report from Study
  Country: US (occurrence: US)
  Receive Date: 20170713
  Receipt Date: 20170713
  Transmission Date: 20171127
  Serious: Yes (Other)
  Sender: FDA-Public Use
  Company Number: US-AMGEN-USASL2017103383

PATIENT
  Age: 65 Year
  Sex: Female

DRUGS (2)
  1. ENBREL [Suspect]
     Active Substance: ETANERCEPT
     Indication: RHEUMATOID ARTHRITIS
     Dosage: 50 MG, UNK
     Route: 065
  2. PREDNISONE. [Concomitant]
     Active Substance: PREDNISONE
     Dosage: UNK

REACTIONS (8)
  - Rash papular [Recovering/Resolving]
  - Fatigue [Unknown]
  - Injection site pain [Recovered/Resolved]
  - Heart rate increased [Unknown]
  - Malaise [Unknown]
  - Injection site rash [Recovering/Resolving]
  - Rash generalised [Recovering/Resolving]
  - Spinal operation [Unknown]

NARRATIVE: CASE EVENT DATE: 20170307
